FAERS Safety Report 8556260-9 (Version None)
Quarter: 2012Q3

REPORT INFORMATION
  Report Type: 
  Country: None (occurrence: None)
  Receive Date: 20120801
  Receipt Date: 20120726
  Transmission Date: 20120928
  Serious: Yes (Other)
  Sender: FDA-Public Use
  Company Number: US-PFIZER INC-2012182500

PATIENT
  Sex: Male
  Weight: 145 kg

DRUGS (12)
  1. LEXAPRO [Suspect]
     Indication: BIPOLAR DISORDER
     Dosage: 5 MG, DAILY
  2. LEXAPRO [Suspect]
     Dosage: 20 MG, DAILY
  3. LEXAPRO [Suspect]
     Dosage: 10 MG, DAILY
  4. LEXAPRO [Suspect]
     Dosage: 5 MG, DAILY
  5. DEPAKOTE [Suspect]
     Indication: BIPOLAR DISORDER
     Dosage: 500 MG IN MORNING AND 1000 MG AT NIGHT
     Dates: start: 20100101, end: 20101101
  6. GEODON [Suspect]
     Dosage: 80 MG AT NIGHT AND 20 MG IN MORNING
     Route: 048
     Dates: end: 20110601
  7. GEODON [Suspect]
     Dosage: 80 MG IN MORNING AND 80 MG AT NIGHT
     Route: 048
  8. SEROQUEL [Concomitant]
     Indication: BIPOLAR DISORDER
     Dosage: 200 MG, DAILY
     Dates: start: 20110101
  9. RITALIN [Concomitant]
     Indication: ATTENTION DEFICIT/HYPERACTIVITY DISORDER
     Dosage: UNK
     Route: 048
  10. AMBIEN [Concomitant]
     Indication: INSOMNIA
     Dosage: UNK
  11. GEODON [Suspect]
     Indication: BIPOLAR DISORDER
     Dosage: 40 MG IN MORNING AND 80 MG AT NIGHT
     Route: 048
     Dates: start: 20101101
  12. LAMICTAL [Concomitant]
     Indication: BIPOLAR DISORDER
     Dosage: 100 OR 200 MG DAILY

REACTIONS (6)
  - HYPERSENSITIVITY [None]
  - DEPRESSION [None]
  - MUSCLE RIGIDITY [None]
  - FATIGUE [None]
  - ANXIETY [None]
  - WEIGHT INCREASED [None]
